FAERS Safety Report 5848113-1 (Version None)
Quarter: 2008Q3

REPORT INFORMATION
  Report Type: 
  Country: None (occurrence: None)
  Receive Date: 20080814
  Receipt Date: 20080814
  Transmission Date: 20090109
  Serious: Yes (Hospitalization)
  Sender: FDA-Public Use
  Company Number: None

PATIENT
  Age: 80 Year
  Sex: Male
  Weight: 69 kg

DRUGS (1)
  1. WARFARIN SODIUM [Suspect]
     Indication: ATRIAL FIBRILLATION
     Dosage: 3.93 MG EVERY DAY PO
     Route: 048
     Dates: start: 20071031, end: 20080723

REACTIONS (4)
  - ANAEMIA [None]
  - ASTHENIA [None]
  - GASTRIC HAEMORRHAGE [None]
  - GASTRIC ULCER [None]
